FAERS Safety Report 6294960-4 (Version None)
Quarter: 2009Q3

REPORT INFORMATION
  Report Type: 
  Country: None (occurrence: None)
  Receive Date: 20090803
  Receipt Date: 20090729
  Transmission Date: 20100115
  Serious: Yes (Hospitalization, Other)
  Sender: FDA-Public Use
  Company Number: BR-BAYER-200916444LA

PATIENT
  Age: 34 Year
  Sex: Female

DRUGS (4)
  1. BETAFERON [Suspect]
     Indication: MULTIPLE SCLEROSIS
     Route: 058
     Dates: start: 20010101, end: 20080901
  2. BETAFERON [Suspect]
     Route: 058
     Dates: start: 20081201
  3. DIAZEPAM [Concomitant]
     Indication: RELAXATION THERAPY
     Route: 048
     Dates: start: 20090101, end: 20090301
  4. UNKNOWN DRUG [Concomitant]
     Indication: URINARY TRACT INFECTION
     Route: 042
     Dates: start: 20090619, end: 20090621

REACTIONS (7)
  - AMNESIA [None]
  - CONVULSION [None]
  - HYPOAESTHESIA ORAL [None]
  - INFLUENZA LIKE ILLNESS [None]
  - MUSCULAR WEAKNESS [None]
  - URINARY TRACT INFECTION [None]
  - URINE ODOUR ABNORMAL [None]
